FAERS Safety Report 14738668 (Version 1)
Quarter: 2018Q2

REPORT INFORMATION
  Report Type: Report from Study
  Country: US (occurrence: US)
  Receive Date: 20180409
  Receipt Date: 20180409
  Transmission Date: 20180711
  Serious: Yes (Other)
  Sender: FDA-Public Use
  Company Number: US-ALEXION PHARMACEUTICALS INC.-A201803941

PATIENT
  Sex: Female

DRUGS (1)
  1. SOLIRIS [Suspect]
     Active Substance: ECULIZUMAB
     Indication: PRODUCT USED FOR UNKNOWN INDICATION
     Route: 065

REACTIONS (7)
  - Mobility decreased [Unknown]
  - Fracture pain [Unknown]
  - Impaired healing [Unknown]
  - Peripheral swelling [Unknown]
  - Transplant rejection [Recovered/Resolved]
  - Hip fracture [Unknown]
  - Psoriasis [Unknown]
